FAERS Safety Report 9835508 (Version 1)
Quarter: 2014Q1

REPORT INFORMATION
  Report Type: Spontaneous
  Country: US (occurrence: US)
  Receive Date: 20140122
  Receipt Date: 20140122
  Transmission Date: 20141002
  Serious: No
  Sender: FDA-Public Use
  Company Number: US-BRISTOL-MYERS SQUIBB COMPANY-19735760

PATIENT
  Age: 71 Year
  Sex: Male
  Weight: 79.36 kg

DRUGS (7)
  1. ELIQUIS [Suspect]
     Indication: ATRIAL FIBRILLATION
     Dosage: TABS
  2. COREG [Concomitant]
  3. SOTALOL [Concomitant]
  4. HYDROCHLOROTHIAZIDE [Concomitant]
  5. XANAX [Concomitant]
  6. LORTAB [Concomitant]
  7. ADVIL [Concomitant]
     Dosage: OCCASIONALLY

REACTIONS (3)
  - Muscular weakness [Unknown]
  - Myalgia [Unknown]
  - Feeling abnormal [Unknown]
